FAERS Safety Report 11811838 (Version 1)
Quarter: 2015Q4

REPORT INFORMATION
  Report Type: Spontaneous
  Country: US (occurrence: US)
  Receive Date: 20151208
  Receipt Date: 20151208
  Transmission Date: 20160305
  Serious: No
  Sender: FDA-Public Use
  Company Number: US-LPDUSPRD-20140777

PATIENT
  Age: 50 Year
  Sex: Female
  Weight: 77.11 kg

DRUGS (16)
  1. CALCIUM [Concomitant]
     Active Substance: CALCIUM
     Dosage: 500MG DAILY
     Route: 065
  2. EVISTA [Concomitant]
     Active Substance: RALOXIFENE HYDROCHLORIDE
     Dosage: 60MG DAILY
     Route: 065
  3. LACTOBACILLUS [Concomitant]
     Active Substance: LACTOBACILLUS ACIDOPHILUS
     Dosage: 1 TABLET DAILY
     Route: 065
  4. DUONEB [Concomitant]
     Active Substance: ALBUTEROL SULFATE\IPRATROPIUM BROMIDE
     Dosage: 0.5MG/3ML BID, AS NEEDED
     Route: 065
  5. ADVAIR DISKUS [Concomitant]
     Active Substance: FLUTICASONE PROPIONATE\SALMETEROL XINAFOATE
     Dosage: 230/21 BID
     Route: 065
  6. ZITHROMAX [Concomitant]
     Active Substance: AZITHROMYCIN DIHYDRATE
     Dosage: 250MG DAILY
     Route: 048
  7. VITAMIN D3 [Concomitant]
     Active Substance: CHOLECALCIFEROL
     Dosage: 3000MG DAILY
     Route: 065
  8. HYDROCORTISONE. [Concomitant]
     Active Substance: HYDROCORTISONE
     Dosage: 7.5MG IN AM, 5MG IN PM
     Route: 065
  9. ZANTAC [Concomitant]
     Active Substance: RANITIDINE HYDROCHLORIDE
     Dosage: 75MG DAILY
     Route: 065
  10. CLARITIN [Concomitant]
     Active Substance: LORATADINE
     Dosage: 10MG DAILY
     Route: 065
  11. PULMICORT TURBUHALER [Concomitant]
     Active Substance: BUDESONIDE
     Dosage: 1MG/2ML BID
  12. NASONEX [Concomitant]
     Active Substance: MOMETASONE FUROATE
     Dosage: 2 SQUIRTS BOTH NOSTRILS DAILY
     Route: 045
  13. TESSALON [Concomitant]
     Active Substance: BENZONATATE
     Dosage: 200MG EVERY 8 HOURS, AS NEEDED
  14. VITAMIN B12 [Concomitant]
     Active Substance: CYANOCOBALAMIN
     Dosage: 2500MCG 3 TIMES WEEKLY
     Route: 065
  15. VENOFER [Suspect]
     Active Substance: IRON SUCROSE
     Dosage: DOSE AND FREQUENCY UNKNOWN
     Route: 065
  16. PRILOSEC [Concomitant]
     Active Substance: OMEPRAZOLE MAGNESIUM
     Dosage: 40MG DAILY
     Route: 065

REACTIONS (1)
  - Hypersensitivity [Unknown]
